FAERS Safety Report 24226902 (Version 1)
Quarter: 2024Q3

REPORT INFORMATION
  Report Type: Spontaneous
  Country: US (occurrence: US)
  Receive Date: 20240820
  Receipt Date: 20240820
  Transmission Date: 20241017
  Serious: No
  Sender: REGENERON
  Company Number: US-REGENERON PHARMACEUTICALS, INC.-2023-106306

PATIENT
  Sex: Male

DRUGS (1)
  1. PRALUENT [Suspect]
     Active Substance: ALIROCUMAB
     Indication: Hypercholesterolaemia
     Dosage: 75 MG, Q2W
     Route: 058
     Dates: start: 20230618, end: 20230813

REACTIONS (6)
  - Gout [Unknown]
  - Pain in extremity [Unknown]
  - Burning sensation [Unknown]
  - Hypoaesthesia [Unknown]
  - Pain in extremity [Unknown]
  - Gout [Unknown]

NARRATIVE: CASE EVENT DATE: 20230101
